FAERS Safety Report 5240573-2 (Version None)
Quarter: 2007Q1

REPORT INFORMATION
  Report Type: 
  Country: None (occurrence: None)
  Receive Date: 20070219
  Receipt Date: 20070206
  Transmission Date: 20070707
  Serious: Yes (Hospitalization)
  Sender: FDA-Public Use
  Company Number: FR-ROCHE-482012

PATIENT
  Age: 58 Year
  Sex: Male
  Weight: 82 kg

DRUGS (4)
  1. FUZEON [Suspect]
     Route: 058
     Dates: start: 20061026, end: 20070105
  2. APTIVUS [Suspect]
     Route: 048
     Dates: start: 20061026, end: 20070105
  3. TRUVADA [Suspect]
     Dosage: ONE DOSE DAILY.
     Route: 048
     Dates: start: 20061026, end: 20070105
  4. NORVIR [Suspect]
     Route: 048
     Dates: start: 19990515, end: 20070105

REACTIONS (1)
  - HEPATIC ENZYME INCREASED [None]
